FAERS Safety Report 5464231-4 (Version None)
Quarter: 2007Q3

REPORT INFORMATION
  Report Type: 
  Country: None (occurrence: None)
  Receive Date: 20070921
  Receipt Date: 20070911
  Transmission Date: 20080115
  Serious: Yes (Hospitalization, Other)
  Sender: FDA-Public Use
  Company Number: US-ELI_LILLY_AND_COMPANY-US_990827295

PATIENT
  Age: 43 Year
  Sex: Female

DRUGS (5)
  1. ILETIN [Suspect]
     Indication: DIABETES MELLITUS
     Dosage: UNK, UNKNOWN
     Route: 058
  2. ILETIN [Suspect]
     Dosage: UNK, UNKNOWN
     Route: 058
     Dates: start: 19920101
  3. HUMULIN R [Suspect]
     Indication: DIABETES MELLITUS
     Dosage: UNK, UNKNOWN
     Route: 058
  4. INSULIN [Suspect]
     Indication: DIABETES MELLITUS
     Dosage: UNK, UNKNOWN
     Route: 058
  5. ILETIN [Suspect]
     Dosage: UNK, UNKNOWN
     Route: 058
     Dates: start: 19920101

REACTIONS (14)
  - ABASIA [None]
  - BLOOD GLUCOSE INCREASED [None]
  - COGNITIVE DISORDER [None]
  - COMA [None]
  - CONJUNCTIVITIS [None]
  - CONVULSION [None]
  - EYE INFECTION [None]
  - HYPERSENSITIVITY [None]
  - KETOACIDOSIS [None]
  - MULTIPLE SCLEROSIS [None]
  - PARALYSIS [None]
  - RASH [None]
  - RAYNAUD'S PHENOMENON [None]
  - SWELLING [None]
